FAERS Safety Report 7156875-9 (Version None)
Quarter: 2010Q4

REPORT INFORMATION
  Report Type: 
  Country: None (occurrence: None)
  Receive Date: 20101214
  Receipt Date: 20101208
  Transmission Date: 20110411
  Serious: Yes (Hospitalization, Other)
  Sender: FDA-Public Use
  Company Number: FR-PFIZER INC-2010086497

PATIENT
  Age: 22 Year
  Sex: Male

DRUGS (3)
  1. CHAMPIX [Suspect]
     Indication: SMOKING CESSATION THERAPY
     Dosage: 0.5 MG, 2X/DAY, MORNING AND EVENING
     Dates: start: 20100629, end: 20100101
  2. KEPPRA [Concomitant]
     Indication: EPILEPSY
     Dosage: UNK
     Dates: start: 20080101
  3. VIMPAT [Concomitant]
     Dosage: UNK
     Dates: start: 20080101

REACTIONS (11)
  - ABNORMAL BEHAVIOUR [None]
  - AGGRESSION [None]
  - BLOOD ALCOHOL ABNORMAL [None]
  - CLAVICLE FRACTURE [None]
  - HEAD INJURY [None]
  - HUMERUS FRACTURE [None]
  - INCREASED APPETITE [None]
  - MENTAL DISORDER [None]
  - ROAD TRAFFIC ACCIDENT [None]
  - SPINAL COLUMN INJURY [None]
  - UPPER LIMB FRACTURE [None]
